FAERS Safety Report 24773464 (Version 1)
Quarter: 2024Q4

REPORT INFORMATION
  Report Type: Other
  Country: PL (occurrence: PL)
  Receive Date: 20241225
  Receipt Date: 20241225
  Transmission Date: 20250114
  Serious: Yes (Hospitalization, Other)
  Sender: GLENMARK
  Company Number: None

PATIENT

DRUGS (4)
  1. GABAPENTIN [Suspect]
     Active Substance: GABAPENTIN
     Indication: Epilepsy
     Dosage: 1 DOSAGE FORM, TID
     Route: 048
     Dates: start: 2001
  2. VALPROATE SODIUM [Suspect]
     Active Substance: VALPROATE SODIUM
     Indication: Epilepsy
     Dosage: 2 DOSAGE FORM (2 TABLETS - 0 - 2 TABLETS)
     Route: 048
     Dates: start: 2001
  3. TOPIRAMATE [Concomitant]
     Active Substance: TOPIRAMATE
     Indication: Epilepsy
     Dosage: 2 DOSAGE FORM, BID (2 TABLETS - 0 - 2 TABLETS)
     Route: 048
     Dates: start: 2001
  4. VENLAFAXINE HYDROCHLORIDE [Concomitant]
     Active Substance: VENLAFAXINE HYDROCHLORIDE
     Indication: Epilepsy
     Dosage: 1 DOSAGE FORM, AM,IN THE MORNING
     Route: 048
     Dates: start: 2001

REACTIONS (1)
  - Pancreatitis [Recovering/Resolving]
